FAERS Safety Report 6650283-2 (Version None)
Quarter: 2010Q1

REPORT INFORMATION
  Report Type: 
  Country: None (occurrence: None)
  Receive Date: 20100325
  Receipt Date: 20091207
  Transmission Date: 20100710
  Serious: Yes (Hospitalization, Other)
  Sender: FDA-Public Use
  Company Number: PHHY2009KR59011

PATIENT
  Age: 44 Year
  Sex: Female

DRUGS (7)
  1. VALSARTAN [Suspect]
     Indication: HYPERTENSION
  2. CARVEDILOL [Suspect]
     Indication: HYPERTENSION
  3. NIFEDIPINE [Suspect]
     Indication: HYPERTENSION
  4. MISOPROSTOL [Concomitant]
     Dosage: 200 MG
  5. MISOPROSTOL [Concomitant]
     Dosage: 400 MG
  6. MISOPROSTOL [Concomitant]
     Dosage: 400 MG
  7. SULPROSTONE [Concomitant]
     Dosage: 42 UG/HOUR
     Route: 042

REACTIONS (8)
  - ABORTION INDUCED [None]
  - ACCELERATED IDIOVENTRICULAR RHYTHM [None]
  - ACUTE MYOCARDIAL INFARCTION [None]
  - BLOOD CREATINE PHOSPHOKINASE MB INCREASED [None]
  - CHEST PAIN [None]
  - DRUG EXPOSURE DURING PREGNANCY [None]
  - NAUSEA [None]
  - VASCULAR OCCLUSION [None]
